FAERS Safety Report 9178008 (Version 1)
Quarter: 2013Q1

REPORT INFORMATION
  Report Type: Spontaneous
  Country: US (occurrence: US)
  Receive Date: 20130321
  Receipt Date: 20130321
  Transmission Date: 20140127
  Serious: Yes (Other)
  Sender: FDA-Public Use
  Company Number: US-ELI_LILLY_AND_COMPANY-US201301007389

PATIENT
  Sex: Male
  Weight: 111 kg

DRUGS (12)
  1. CIALIS [Suspect]
     Indication: ERECTILE DYSFUNCTION
     Dosage: 5 MG, QD
     Dates: start: 20120827, end: 20121018
  2. CIALIS [Suspect]
     Dosage: 2.5 MG, QD
  3. METFORMIN [Concomitant]
     Dosage: 1 DF, EACH EVENING
  4. JANUVIA [Concomitant]
     Dosage: 100 MG, QD
  5. FERROUS SULFATE [Concomitant]
     Dosage: 325 MG, QD
  6. LISINOPRIL [Concomitant]
     Dosage: 20 MG, QD
  7. CLOCORTOLONE [Concomitant]
     Dosage: 1 DF, BID
  8. MULTIVITAMIN [Concomitant]
     Dosage: 1 DF, QD
  9. OSCAL [Concomitant]
     Dosage: 500 MG, BID
  10. B-50 [Concomitant]
     Dosage: 1 DF, QD
  11. ALPHA-LIPOIC ACID [Concomitant]
     Dosage: 100 MG, QD
  12. VITAMIN C [Concomitant]
     Dosage: 1000 MG, QD

REACTIONS (3)
  - Arrhythmia [Recovered/Resolved]
  - Chest pain [Recovered/Resolved]
  - Palpitations [Recovered/Resolved]
